FAERS Safety Report 20200202 (Version 1)
Quarter: 2021Q4

REPORT INFORMATION
  Report Type: 
  Country: GB (occurrence: GB)
  Receive Date: 20211217
  Receipt Date: 20211217
  Transmission Date: 20220303
  Serious: Yes (Disabling, Other)
  Sender: FDA-Public Use
  Company Number: None

PATIENT
  Age: 47 Year
  Sex: Male
  Weight: 76.2 kg

DRUGS (9)
  1. ROSUVASTATIN CALCIUM [Suspect]
     Active Substance: ROSUVASTATIN CALCIUM
     Indication: Hypercholesterolaemia
     Route: 048
     Dates: start: 20201218
  2. ASPIRIN [Concomitant]
     Active Substance: ASPIRIN
     Indication: Product used for unknown indication
  3. BISOPROLOL FUMARATE [Concomitant]
     Active Substance: BISOPROLOL FUMARATE
     Indication: Product used for unknown indication
  4. COCODAMOL [Concomitant]
     Active Substance: ACETAMINOPHEN\CODEINE PHOSPHATE
     Indication: Product used for unknown indication
  5. ESCITALOPRAM [Concomitant]
     Active Substance: ESCITALOPRAM OXALATE
     Indication: Product used for unknown indication
  6. EZETIMIBE [Concomitant]
     Active Substance: EZETIMIBE
     Indication: Product used for unknown indication
  7. LANSOPRAZOLE [Concomitant]
     Active Substance: LANSOPRAZOLE
     Indication: Product used for unknown indication
  8. MORPHINE [Concomitant]
     Active Substance: MORPHINE
     Indication: Product used for unknown indication
  9. PRASUGREL [Concomitant]
     Active Substance: PRASUGREL
     Indication: Product used for unknown indication

REACTIONS (3)
  - Muscle spasms [Not Recovered/Not Resolved]
  - Pain in extremity [Unknown]
  - Neuropathy peripheral [Not Recovered/Not Resolved]

NARRATIVE: CASE EVENT DATE: 20210301
